FAERS Safety Report 5070457-4 (Version None)
Quarter: 2006Q3

REPORT INFORMATION
  Report Type: 
  Country: None (occurrence: None)
  Receive Date: 20060804
  Receipt Date: 20050919
  Transmission Date: 20061208
  Serious: Yes (Congenital Anomaly)
  Sender: FDA-Public Use
  Company Number: GB-ABBOTT-05P-167-0311331-00

PATIENT
  Sex: Male

DRUGS (1)
  1. EPILIM [Suspect]
     Indication: DRUG EXPOSURE DURING PREGNANCY

REACTIONS (6)
  - ABNORMAL BEHAVIOUR [None]
  - DEVELOPMENTAL DELAY [None]
  - DYSMORPHISM [None]
  - FOETAL ANTICONVULSANT SYNDROME [None]
  - INJURY [None]
  - VISUAL DISTURBANCE [None]
